FAERS Safety Report 11259512 (Version 1)
Quarter: 2015Q3

REPORT INFORMATION
  Report Type: Spontaneous
  Country: US (occurrence: None)
  Receive Date: 20150709
  Receipt Date: 20150709
  Transmission Date: 20151125
  Serious: Yes (Disabling)
  Sender: FDA-Public Use
  Company Number: None

PATIENT
  Age: 59 Year
  Sex: Female
  Weight: 83.92 kg

DRUGS (9)
  1. GARLIC. [Concomitant]
     Active Substance: GARLIC
  2. HAWTHORN BERRY/LEAF [Concomitant]
  3. PROBIOTIC [Concomitant]
     Active Substance: PROBIOTICS NOS
  4. SPECTRUM ENZYMES [Concomitant]
  5. ALPHA LIPOIC ACID [Concomitant]
     Active Substance: .ALPHA.-LIPOIC ACID
  6. GRAPE SEED EXTRACT/ANIA FRUIT [Concomitant]
  7. MULTI VITAMIN [Concomitant]
     Active Substance: VITAMINS
  8. MEROPENEM/SODIUM CHLORIDE 0.9% 1000 MG/100MG [Suspect]
     Active Substance: MEROPENEM\SODIUM CHLORIDE
     Indication: ESCHERICHIA INFECTION
     Dosage: 1 BAG
     Route: 042
  9. MAGNESIUM CITRATE. [Concomitant]
     Active Substance: MAGNESIUM CITRATE

REACTIONS (6)
  - Pain [None]
  - Movement disorder [None]
  - Tenderness [None]
  - Gait disturbance [None]
  - Grip strength decreased [None]
  - Pain in extremity [None]

NARRATIVE: CASE EVENT DATE: 20150708
